FAERS Safety Report 9279011 (Version 7)
Quarter: 2014Q1

REPORT INFORMATION
  Report Type: Spontaneous
  Country: US (occurrence: US)
  Receive Date: 20130508
  Receipt Date: 20140319
  Transmission Date: 20141002
  Serious: Yes (Life-Threatening, Hospitalization, Other)
  Sender: FDA-Public Use
  Company Number: US-JNJFOC-20130416083

PATIENT
  Age: 34 Year
  Sex: Female
  Weight: 70 kg

DRUGS (6)
  1. EXTRA STRENGTH TYLENOL [Suspect]
     Indication: PAIN
     Route: 048
     Dates: start: 2011
  2. EXTRA STRENGTH TYLENOL [Suspect]
     Indication: PYREXIA
     Route: 048
     Dates: start: 2011
  3. EXCEDRIN NOS [Suspect]
     Indication: MALAISE
     Dosage: 6-8 TABLETS DAILY.
     Route: 048
     Dates: start: 2011, end: 20110630
  4. EXCEDRIN NOS [Suspect]
     Indication: PAIN
     Dosage: 6-8 TABLETS DAILY.
     Route: 048
     Dates: start: 2011, end: 20110630
  5. EXCEDRIN NOS [Suspect]
     Indication: PYREXIA
     Dosage: 6-8 TABLETS DAILY.
     Route: 048
     Dates: start: 2011, end: 20110630
  6. ETHANOL [Suspect]
     Indication: PRODUCT USED FOR UNKNOWN INDICATION
     Route: 065

REACTIONS (12)
  - Cholecystitis [Recovering/Resolving]
  - Thrombocytopenia [Recovered/Resolved]
  - Anaemia [Recovering/Resolving]
  - Acute hepatic failure [Recovered/Resolved]
  - Hepatitis acute [Unknown]
  - Hypotension [Recovered/Resolved]
  - Injury [Unknown]
  - Lactic acidosis [Recovered/Resolved]
  - Hepatic encephalopathy [Recovering/Resolving]
  - Renal failure acute [Recovering/Resolving]
  - Sepsis [Recovering/Resolving]
  - Coagulopathy [Recovering/Resolving]
